FAERS Safety Report 7311649-0 (Version None)
Quarter: 2011Q1

REPORT INFORMATION
  Report Type: 
  Country: None (occurrence: None)
  Receive Date: 20110215
  Receipt Date: 20110215
  Transmission Date: 20110831
  Serious: No
  Sender: FDA-Public Use
  Company Number: None

PATIENT
  Sex: Male
  Weight: 100 kg

DRUGS (1)
  1. AMPYRA [Suspect]
     Indication: MULTIPLE SCLEROSIS
     Dosage: 1 TAB EVERY 12 HOURS BY MOUTH
     Route: 048
     Dates: start: 20101001, end: 20101201

REACTIONS (2)
  - MUSCULAR WEAKNESS [None]
  - AMNESIA [None]
